FAERS Safety Report 18937317 (Version 1)
Quarter: 2021Q1

REPORT INFORMATION
  Report Type: Spontaneous
  Country: US (occurrence: US)
  Receive Date: 20210225
  Receipt Date: 20210225
  Transmission Date: 20210420
  Serious: No
  Sender: FDA-Public Use
  Company Number: US-ACCORD-191698

PATIENT
  Sex: Male

DRUGS (2)
  1. BUSPIRONE [Suspect]
     Active Substance: BUSPIRONE HYDROCHLORIDE
     Indication: PRODUCT USED FOR UNKNOWN INDICATION
  2. KORLYM [Interacting]
     Active Substance: MIFEPRISTONE
     Indication: PRODUCT USED FOR UNKNOWN INDICATION

REACTIONS (13)
  - Muscle spasms [Unknown]
  - Panic attack [Unknown]
  - Oedema [Unknown]
  - Heart rate increased [Unknown]
  - Blood glucose increased [Unknown]
  - Blood pressure decreased [Unknown]
  - Nausea [Unknown]
  - Drug interaction [Unknown]
  - Weight increased [Unknown]
  - Arthralgia [Unknown]
  - Anxiety [Unknown]
  - Blood pressure increased [Unknown]
  - Dizziness [Unknown]
